FAERS Safety Report 6356931-9 (Version None)
Quarter: 2009Q3

REPORT INFORMATION
  Report Type: 
  Country: None (occurrence: None)
  Receive Date: 20090915
  Receipt Date: 20090903
  Transmission Date: 20100115
  Serious: Yes (Death, Other)
  Sender: FDA-Public Use
  Company Number: PH-PFIZER INC-2008080643

PATIENT
  Age: 79 Year

DRUGS (6)
  1. CEFOPERAZONE SODIUM, SULBACTAM SODIUM [Suspect]
     Indication: SEPSIS
     Dates: start: 20080729, end: 20080802
  2. IRBESARTAN [Concomitant]
     Dates: start: 20000101
  3. SINEMET [Concomitant]
     Dates: start: 20040101
  4. LEVOFLOXACIN [Concomitant]
     Dates: start: 20080721, end: 20080728
  5. GLIPIZIDE [Concomitant]
     Dates: start: 20000101
  6. SALBUTAMOL [Concomitant]
     Route: 055
     Dates: start: 20080721, end: 20080728

REACTIONS (2)
  - ACUTE MYOCARDIAL INFARCTION [None]
  - SEPSIS [None]
